FAERS Safety Report 8791573 (Version 2)
Quarter: 2013Q1

REPORT INFORMATION
  Report Type: Spontaneous
  Country: GB (occurrence: None)
  Receive Date: 20120913
  Receipt Date: 20121217
  Transmission Date: 20140127
  Serious: Yes (Disabling)
  Sender: FDA-Public Use
  Company Number: 2012-01322

PATIENT
  Age: 71 Year
  Sex: Male

DRUGS (8)
  1. SIMVASTATIN [Suspect]
     Indication: HYPERCHOLESTEROLAEMIA
     Route: 048
     Dates: start: 20120730, end: 20120802
  2. ATORVASTATIN [Suspect]
     Route: 048
     Dates: start: 20120803, end: 20120807
  3. CLOPIDOGREL (UNKNOWN) [Suspect]
     Route: 048
     Dates: start: 20120730
  4. EZETIMIBE MICRONISED (EZETROL) [Suspect]
     Route: 048
     Dates: start: 20120808, end: 20120810
  5. ASPIRIN [Concomitant]
  6. FEXOFENADINE UNKNOWN [Concomitant]
  7. FLUCLOXACILLIN [Concomitant]
  8. LACTULOSE (LACTULOSE SOLUTION) [Concomitant]

REACTIONS (2)
  - Dyspnoea [None]
  - Cough [None]
